FAERS Safety Report 8205460-6 (Version None)
Quarter: 2012Q1

REPORT INFORMATION
  Report Type: 
  Country: None (occurrence: None)
  Receive Date: 20120309
  Receipt Date: 20120223
  Transmission Date: 20120608
  Serious: Yes (Hospitalization)
  Sender: FDA-Public Use
  Company Number: TIF2012A00007

PATIENT
  Age: 79 Year
  Sex: Male

DRUGS (6)
  1. PIOGLITAZONE HYDROCHLORIDE/METFORMIN HYDROCHLORIDE [Suspect]
     Indication: PRODUCT USED FOR UNKNOWN INDICATION
     Dosage: 1730 MG
     Dates: start: 20110519, end: 20120104
  2. ATENOL (ATENOLOL) [Concomitant]
  3. ZYLORIC (ALLOPRUINOL) [Concomitant]
  4. COUMADIN [Concomitant]
  5. NORVASC [Concomitant]
  6. TRIATEC (CODEINE PHOSPHATE, PARACETAMOL) [Concomitant]

REACTIONS (1)
  - BLADDER ADENOCARCINOMA STAGE UNSPECIFIED [None]
